FAERS Safety Report 18686426 (Version 6)
Quarter: 2021Q1

REPORT INFORMATION
  Report Type: Report from Study
  Country: None (occurrence: US)
  Receive Date: 20201230
  Receipt Date: 20210311
  Transmission Date: 20210419
  Serious: Yes (Hospitalization, Other)
  Sender: FDA-Public Use
  Company Number: US-ABBVIE-20K-163-3709433-00

PATIENT
  Age: 18 Year
  Sex: Female
  Weight: 45.4 kg

DRUGS (6)
  1. LEXAPRO [Concomitant]
     Active Substance: ESCITALOPRAM OXALATE
     Indication: ANXIETY
  2. COVID?19 VACCINE [Concomitant]
     Indication: COVID-19 IMMUNISATION
     Dosage: MODERNA
     Route: 030
     Dates: start: 20210219, end: 20210219
  3. AMPHOTERICIN B. [Concomitant]
     Active Substance: AMPHOTERICIN B
     Indication: HISTOPLASMOSIS
  4. LEUCOVORIN CALCIUM. [Concomitant]
     Active Substance: LEUCOVORIN CALCIUM
     Indication: PRODUCT USED FOR UNKNOWN INDICATION
  5. ITRACONAZOLE. [Concomitant]
     Active Substance: ITRACONAZOLE
     Indication: HISTOPLASMOSIS
  6. HUMIRA [Suspect]
     Active Substance: ADALIMUMAB
     Indication: CROHN^S DISEASE
     Route: 058
     Dates: start: 20200915, end: 20201208

REACTIONS (9)
  - Alanine aminotransferase abnormal [Recovered/Resolved]
  - Oxygen saturation decreased [Recovered/Resolved]
  - Infectious mononucleosis [Recovering/Resolving]
  - Histoplasmosis [Recovering/Resolving]
  - Blood alkaline phosphatase increased [Recovering/Resolving]
  - Aspartate aminotransferase abnormal [Recovering/Resolving]
  - Device issue [Recovered/Resolved]
  - Decreased appetite [Recovered/Resolved]
  - Pneumonia [Recovered/Resolved]

NARRATIVE: CASE EVENT DATE: 20201208
